FAERS Safety Report 9418120 (Version 1)
Quarter: 2013Q3

REPORT INFORMATION
  Report Type: Spontaneous
  Country: US (occurrence: US)
  Receive Date: 20130724
  Receipt Date: 20130724
  Transmission Date: 20140515
  Serious: Yes (Hospitalization)
  Sender: FDA-Public Use
  Company Number: US-AMGEN-USASP2013050503

PATIENT
  Age: 81 Year
  Sex: Female

DRUGS (8)
  1. PROLIA [Suspect]
     Indication: PRODUCT USED FOR UNKNOWN INDICATION
     Dosage: 60 MG, Q6MO
  2. AXID                               /00867001/ [Concomitant]
  3. CITALOPRAM [Concomitant]
  4. VITAMIN C                          /00008001/ [Concomitant]
  5. CALTRATE                           /00944201/ [Concomitant]
  6. VITAMIN B12                        /00056201/ [Concomitant]
  7. VITAMIN D3 [Concomitant]
  8. ZOCOR [Concomitant]

REACTIONS (6)
  - Haemorrhage [Recovering/Resolving]
  - Fall [Unknown]
  - Cough [Unknown]
  - Nasopharyngitis [Unknown]
  - Diplopia [Unknown]
  - Tooth disorder [Unknown]
